FAERS Safety Report 7100105-0 (Version None)
Quarter: 2010Q4

REPORT INFORMATION
  Report Type: 
  Country: None (occurrence: None)
  Receive Date: 20101112
  Receipt Date: 20091229
  Transmission Date: 20110411
  Serious: No
  Sender: FDA-Public Use
  Company Number: A0837198A

PATIENT
  Age: 73 Year
  Sex: Female

DRUGS (3)
  1. COREG [Suspect]
     Indication: BLOOD PRESSURE
     Dosage: .5TAB TWICE PER DAY
     Route: 048
     Dates: end: 20090401
  2. MICARDIS [Concomitant]
  3. OTHER MEDICATIONS [Concomitant]

REACTIONS (1)
  - HYPOTENSION [None]
